FAERS Safety Report 6170405-X (Version None)
Quarter: 2009Q2

REPORT INFORMATION
  Report Type: 
  Country: None (occurrence: None)
  Receive Date: 20090427
  Receipt Date: 20090427
  Transmission Date: 20091009
  Serious: No
  Sender: FDA-Public Use
  Company Number: None

PATIENT
  Age: 69 Year
  Sex: Male
  Weight: 86 kg

DRUGS (14)
  1. CLOFARABINE [Suspect]
     Indication: ACUTE MYELOID LEUKAEMIA
     Dosage: 40MG/M2 IV QD X5D
     Route: 042
     Dates: start: 20081215, end: 20081219
  2. CYTARABINE [Concomitant]
  3. ACYCLOVIR [Concomitant]
  4. ALLOPURINOL [Concomitant]
  5. CARBIDOPA AND LEVODOPA [Concomitant]
  6. DEXAMETHASONE 4MG TAB [Concomitant]
  7. LEVOFLOX [Concomitant]
  8. ATIVAN [Concomitant]
  9. MORPHINE [Concomitant]
  10. ZOFRAN [Concomitant]
  11. PREVACID [Concomitant]
  12. SENNA [Concomitant]
  13. FLOMAX [Concomitant]
  14. VORICONAZOLE [Concomitant]

REACTIONS (2)
  - ERYTHEMA [None]
  - RASH [None]
